FAERS Safety Report 7411264-4 (Version None)
Quarter: 2011Q2

REPORT INFORMATION
  Report Type: 
  Country: None (occurrence: None)
  Receive Date: 20110413
  Receipt Date: 20100507
  Transmission Date: 20111010
  Serious: Yes (Other)
  Sender: FDA-Public Use
  Company Number: US-BRISTOL-MYERS SQUIBB COMPANY-15094907

PATIENT
  Age: 63 Year
  Sex: Female
  Weight: 70 kg

DRUGS (7)
  1. ASMANEX TWISTHALER [Concomitant]
  2. SPIRIVA [Concomitant]
  3. BENADRYL [Concomitant]
     Indication: PREMEDICATION
  4. ALLEGRA [Concomitant]
     Indication: PREMEDICATION
  5. ERBITUX [Suspect]
     Indication: TRACHEAL CANCER
     Dosage: RECEIVED 2ND CYCLE ON 05/06/2010
     Route: 042
     Dates: start: 20100422
  6. PRAVACHOL [Concomitant]
  7. NORVASC [Concomitant]

REACTIONS (3)
  - CHEST DISCOMFORT [None]
  - FEELING HOT [None]
  - DYSPNOEA [None]
